FAERS Safety Report 6667836-8 (Version None)
Quarter: 2010Q2

REPORT INFORMATION
  Report Type: 
  Country: None (occurrence: None)
  Receive Date: 20100405
  Receipt Date: 20100325
  Transmission Date: 20101027
  Serious: Yes (Other)
  Sender: FDA-Public Use
  Company Number: US-PFIZER INC-2010039207

PATIENT
  Age: 56 Year
  Sex: Female
  Weight: 81.633 kg

DRUGS (5)
  1. LIPITOR [Suspect]
     Indication: BLOOD CHOLESTEROL INCREASED
     Dosage: 20 MG, DAILY
     Route: 048
     Dates: start: 20090101
  2. ACYCLOVIR [Concomitant]
     Dosage: 400 MG, DAILY
  3. ACETYLSALICYLIC ACID [Concomitant]
     Dosage: 81 MG, DAILY
  4. ANASTROZOLE [Concomitant]
     Dosage: 1 MG, DAILY
  5. CENTRUM [Concomitant]
     Dosage: UNK

REACTIONS (1)
  - JOINT STIFFNESS [None]
